FAERS Safety Report 9415845 (Version 1)
Quarter: 2013Q3

REPORT INFORMATION
  Report Type: Report from Study
  Country: ID (occurrence: ID)
  Receive Date: 20130724
  Receipt Date: 20130724
  Transmission Date: 20140515
  Serious: Yes (Death)
  Sender: FDA-Public Use
  Company Number: ID-ROCHE-1252060

PATIENT
  Sex: Female
  Weight: 60 kg

DRUGS (2)
  1. AVASTIN [Suspect]
     Indication: OVARIAN CANCER METASTATIC
     Dosage: LAST CYCLE ON 13/NOV/2012
     Route: 041
     Dates: start: 20120110
  2. PACLITAXEL [Concomitant]
     Indication: OVARIAN CANCER METASTATIC

REACTIONS (2)
  - Death [Fatal]
  - Off label use [Unknown]
